FAERS Safety Report 14900794 (Version 1)
Quarter: 2018Q2

REPORT INFORMATION
  Report Type: Spontaneous
  Country: US (occurrence: US)
  Receive Date: 20180428
  Receipt Date: 20180428
  Transmission Date: 20180711
  Serious: No
  Sender: FDA-Public Use
  Company Number: None

PATIENT
  Age: 56 Year
  Sex: Female
  Weight: 59.4 kg

DRUGS (16)
  1. LIQUITEARS [Suspect]
     Active Substance: POLYVINYL ALCOHOL
     Indication: DRY EYE
     Dosage: ?          QUANTITY:15 ML;?
     Route: 047
     Dates: start: 20180401, end: 20180427
  2. GABAPENTIN. [Concomitant]
     Active Substance: GABAPENTIN
  3. CLARITIN-D NOS [Concomitant]
     Active Substance: LORATADINE\PSEUDOEPHEDRINE SULFATE
  4. BOTOX [Concomitant]
     Active Substance: ONABOTULINUMTOXINA
  5. PREDNISONE. [Concomitant]
     Active Substance: PREDNISONE
  6. SYSTANE DROPS [Concomitant]
  7. NYSTATIN. [Concomitant]
     Active Substance: NYSTATIN
  8. PROPRANOLOL [Concomitant]
     Active Substance: PROPRANOLOL HYDROCHLORIDE
  9. FLUCONAZOLE. [Concomitant]
     Active Substance: FLUCONAZOLE
  10. FLUOXETINE [Concomitant]
     Active Substance: FLUOXETINE HYDROCHLORIDE
  11. DOXYCYCLINE. [Concomitant]
     Active Substance: DOXYCYCLINE
  12. BALSALAZIDE [Concomitant]
     Active Substance: BALSALAZIDE
  13. METROGEL [Concomitant]
     Active Substance: METRONIDAZOLE
  14. RIZATRIPTAN. [Concomitant]
     Active Substance: RIZATRIPTAN
  15. ONE-A-DAY WOMEN^S VITAMINS [Concomitant]
  16. CITRACAL [Concomitant]
     Active Substance: CALCIUM CITRATE

REACTIONS (3)
  - Product measured potency issue [None]
  - Product quality issue [None]
  - Instillation site pain [None]

NARRATIVE: CASE EVENT DATE: 20180401
